FAERS Safety Report 25100378 (Version 1)
Quarter: 2025Q1

REPORT INFORMATION
  Report Type: Report from Study
  Country: US (occurrence: US)
  Receive Date: 20250320
  Receipt Date: 20250320
  Transmission Date: 20250409
  Serious: Yes (Other)
  Sender: ALEXION PHARMACEUTICALS
  Company Number: US-AstraZeneca-CH-00827876A

PATIENT

DRUGS (1)
  1. BENRALIZUMAB [Suspect]
     Active Substance: BENRALIZUMAB
     Indication: Product used for unknown indication
     Route: 065

REACTIONS (9)
  - Immunodeficiency [Unknown]
  - Psoriatic arthropathy [Unknown]
  - Sinusitis [Unknown]
  - Ear infection [Unknown]
  - Bronchitis [Unknown]
  - Hypersensitivity [Unknown]
  - Asthma [Unknown]
  - Depression [Unknown]
  - Infection [Unknown]
